FAERS Safety Report 7825824-X (Version None)
Quarter: 2011Q4

REPORT INFORMATION
  Report Type: 
  Country: None (occurrence: None)
  Receive Date: 20111019
  Receipt Date: 20111012
  Transmission Date: 20120403
  Serious: Yes (Hospitalization)
  Sender: FDA-Public Use
  Company Number: US-GILEAD-2011-0045393

PATIENT

DRUGS (3)
  1. LETAIRIS [Suspect]
     Indication: PRODUCT USED FOR UNKNOWN INDICATION
     Dosage: 10 MG, UNK
     Route: 048
     Dates: start: 20090310
  2. REVATIO [Concomitant]
  3. REMODULIN [Concomitant]

REACTIONS (2)
  - SICKLE CELL ANAEMIA [None]
  - FLUID RETENTION [None]
